FAERS Safety Report 13029968 (Version 1)
Quarter: 2016Q4

REPORT INFORMATION
  Report Type: Spontaneous
  Country: US (occurrence: US)
  Receive Date: 20161215
  Receipt Date: 20161215
  Transmission Date: 20170207
  Serious: Yes (Hospitalization)
  Sender: FDA-Public Use
  Company Number: US-JNJFOC-20161212255

PATIENT
  Sex: Male

DRUGS (12)
  1. LOMOTIL [Concomitant]
     Active Substance: ATROPINE SULFATE\DIPHENOXYLATE HYDROCHLORIDE
     Indication: DIARRHOEA
  2. LIDODERM [Concomitant]
     Active Substance: LIDOCAINE
     Dosage: PLACES TWO PATCH ONTO SKIN DAILY. APPLY FOR 12 HOURS THEN REMOVE FOR 12 HOURS
     Route: 061
  3. ZOFRAN [Concomitant]
     Active Substance: ONDANSETRON HYDROCHLORIDE
     Dosage: ONE TABLET EVERY SIX HOURS AS NEEDED
     Route: 048
  4. ROXICODONE [Concomitant]
     Active Substance: OXYCODONE HYDROCHLORIDE
     Indication: PAIN
     Dosage: 15 MG BY MOUTH EVERY FOUR HOURS AS NEEDED
     Route: 048
  5. ALDACTONE [Concomitant]
     Active Substance: SPIRONOLACTONE
  6. IMODIUM [Concomitant]
     Active Substance: LOPERAMIDE HYDROCHLORIDE
     Indication: DIARRHOEA
     Route: 048
  7. LYRICA [Concomitant]
     Active Substance: PREGABALIN
  8. ZYLOPRIM [Concomitant]
     Active Substance: ALLOPURINOL
     Indication: DIARRHOEA
     Route: 048
  9. LYRICA [Concomitant]
     Active Substance: PREGABALIN
     Dosage: 300 MG, NIGHTLY
  10. ARICEPT [Concomitant]
     Active Substance: DONEPEZIL HYDROCHLORIDE
     Dosage: 10 MG, NIGHTLY
     Route: 048
  11. PRILOSEC [Concomitant]
     Active Substance: OMEPRAZOLE MAGNESIUM
     Dosage: 20 MG, QD BEFORE BREAKFAST
     Route: 048
  12. IMBRUVICA [Suspect]
     Active Substance: IBRUTINIB
     Indication: CHRONIC LYMPHOCYTIC LEUKAEMIA
     Route: 048

REACTIONS (3)
  - Incorrect dose administered [Unknown]
  - Hospitalisation [Unknown]
  - Off label use [Unknown]
